FAERS Safety Report 8418704-2 (Version None)
Quarter: 2012Q2

REPORT INFORMATION
  Report Type: 
  Country: None (occurrence: None)
  Receive Date: 20120531
  Receipt Date: 20120517
  Transmission Date: 20120825
  Serious: Yes (Other)
  Sender: FDA-Public Use
  Company Number: JP-2012-15261

PATIENT
  Age: 83 Year
  Sex: Male

DRUGS (7)
  1. SAMSCA [Suspect]
     Dosage: , ORAL
     Route: 048
     Dates: start: 20120426
  2. CARVEDILOL [Concomitant]
  3. LASIX [Concomitant]
  4. WARFARIN SODIUM [Concomitant]
  5. ASPIRIN [Concomitant]
  6. OLMESARTAN MEDOXOMIL [Concomitant]
  7. PLAVIX [Concomitant]

REACTIONS (1)
  - PEMPHIGOID [None]
